FAERS Safety Report 7365056-5 (Version None)
Quarter: 2011Q1

REPORT INFORMATION
  Report Type: 
  Country: None (occurrence: None)
  Receive Date: 20110321
  Receipt Date: 20110315
  Transmission Date: 20110831
  Serious: Yes (Death, Hospitalization, Other)
  Sender: FDA-Public Use
  Company Number: PHHY2011JP08588

PATIENT
  Age: 23 Year
  Sex: Female

DRUGS (8)
  1. AZATHIOPRINE [Concomitant]
     Dosage: 50 MG, UNK
  2. ANTILYMPHOCYTE IMMUNOGLOBULIN [Concomitant]
     Indication: RENAL TRANSPLANT
     Dosage: UNK
  3. CHEMOTHERAPEUTICS NOS [Concomitant]
  4. SANDIMMUNE [Suspect]
     Indication: RENAL TRANSPLANT
  5. AZATHIOPRINE [Concomitant]
     Indication: RENAL TRANSPLANT
     Dosage: 25 MG, UNK
  6. PREDNISOLONE [Concomitant]
     Indication: RENAL TRANSPLANT
  7. NEORAL [Suspect]
     Indication: RENAL TRANSPLANT
  8. STEROIDS NOS [Concomitant]
     Dosage: 5 MG, UNK

REACTIONS (6)
  - DIFFUSE LARGE B-CELL LYMPHOMA [None]
  - WEIGHT DECREASED [None]
  - EPSTEIN-BARR VIRUS ASSOCIATED LYMPHOPROLIFERATIVE DISORDER [None]
  - ABDOMINAL MASS [None]
  - KIDNEY TRANSPLANT REJECTION [None]
  - LYMPHADENOPATHY [None]
